FAERS Safety Report 10085299 (Version 1)
Quarter: 2014Q2

REPORT INFORMATION
  Report Type: Report from Study
  Country: US (occurrence: US)
  Receive Date: 20140417
  Receipt Date: 20140417
  Transmission Date: 20141212
  Serious: Yes (Other)
  Sender: FDA-Public Use
  Company Number: US-ONYX-2014-0800

PATIENT
  Age: 72 Year
  Sex: Male
  Weight: 101 kg

DRUGS (2)
  1. CARFILZOMIB [Suspect]
     Indication: PLASMA CELL MYELOMA
     Route: 042
     Dates: start: 20140219, end: 20140403
  2. DEXAMETHASONE [Concomitant]
     Indication: PLASMA CELL MYELOMA
     Route: 048
     Dates: start: 20140219, end: 20140403

REACTIONS (1)
  - Glaucoma [Not Recovered/Not Resolved]
